FAERS Safety Report 23693886 (Version 8)
Quarter: 2024Q4

REPORT INFORMATION
  Report Type: Report from Study
  Country: US (occurrence: US)
  Receive Date: 20240401
  Receipt Date: 20241122
  Transmission Date: 20250114
  Serious: Yes (Other)
  Sender: ABBVIE
  Company Number: US-ABBVIE-5696904

PATIENT
  Age: 52 Year
  Sex: Female
  Weight: 80 kg

DRUGS (23)
  1. SKYRIZI [Suspect]
     Active Substance: RISANKIZUMAB-RZAA
     Indication: Psoriasis
     Route: 058
     Dates: start: 20220301, end: 20220301
  2. SKYRIZI [Suspect]
     Active Substance: RISANKIZUMAB-RZAA
     Indication: Psoriasis
     Route: 058
     Dates: start: 20220401
  3. SKYRIZI [Suspect]
     Active Substance: RISANKIZUMAB-RZAA
     Dosage: DOSAGE: 150 MG/ML
     Route: 058
  4. SKYRIZI [Suspect]
     Active Substance: RISANKIZUMAB-RZAA
     Dosage: DOSAGE: 150 MG/ML
     Route: 058
  5. SKYRIZI [Suspect]
     Active Substance: RISANKIZUMAB-RZAA
     Dosage: DOSAGE: 150 MG/ML
     Route: 058
  6. SKYRIZI [Suspect]
     Active Substance: RISANKIZUMAB-RZAA
     Dosage: DOSAGE: 150 MG/ML
     Route: 058
  7. SKYRIZI [Suspect]
     Active Substance: RISANKIZUMAB-RZAA
     Dosage: DOSAGE: 150 MG/ML
     Route: 058
  8. SKYRIZI [Suspect]
     Active Substance: RISANKIZUMAB-RZAA
     Dosage: DOSAGE: 150 MG/ML
     Route: 058
  9. SKYRIZI [Suspect]
     Active Substance: RISANKIZUMAB-RZAA
     Dosage: DOSAGE: 150 MG/ML
     Route: 058
  10. SKYRIZI [Suspect]
     Active Substance: RISANKIZUMAB-RZAA
     Dosage: DOSAGE: 150 MG/ML
     Route: 058
  11. SKYRIZI [Suspect]
     Active Substance: RISANKIZUMAB-RZAA
     Route: 058
     Dates: start: 20210327
  12. SKYRIZI [Suspect]
     Active Substance: RISANKIZUMAB-RZAA
     Dosage: DOSAGE: 150 MG/ML
     Route: 058
     Dates: start: 20231031
  13. HYDROXYZINE HYDROCHLORIDE [Concomitant]
     Active Substance: HYDROXYZINE HYDROCHLORIDE
     Indication: Anxiety
     Dates: start: 20230723
  14. HYDROXYZINE HYDROCHLORIDE [Concomitant]
     Active Substance: HYDROXYZINE HYDROCHLORIDE
     Indication: Anxiety
     Dates: start: 20230723
  15. BENADRYL [Concomitant]
     Active Substance: DIPHENHYDRAMINE HYDROCHLORIDE
     Indication: Product used for unknown indication
  16. COSENTYX [Concomitant]
     Active Substance: SECUKINUMAB
     Indication: Product used for unknown indication
  17. COSENTYX [Concomitant]
     Active Substance: SECUKINUMAB
     Indication: Product used for unknown indication
  18. COSENTYX [Concomitant]
     Active Substance: SECUKINUMAB
     Indication: Product used for unknown indication
  19. TREMFYA [Concomitant]
     Active Substance: GUSELKUMAB
     Indication: Product used for unknown indication
  20. TREMFYA [Concomitant]
     Active Substance: GUSELKUMAB
     Indication: Product used for unknown indication
  21. TREMFYA [Concomitant]
     Active Substance: GUSELKUMAB
     Indication: Product used for unknown indication
  22. TREMFYA [Concomitant]
     Active Substance: GUSELKUMAB
     Indication: Product used for unknown indication
  23. TREMFYA [Concomitant]
     Active Substance: GUSELKUMAB
     Indication: Product used for unknown indication

REACTIONS (32)
  - Amnesia [Recovering/Resolving]
  - Stress [Unknown]
  - Seizure [Recovered/Resolved]
  - Thyroid mass [Not Recovered/Not Resolved]
  - Irritability [Not Recovered/Not Resolved]
  - Neoplasm progression [Recovering/Resolving]
  - Neoplasm progression [Recovered/Resolved]
  - Migraine [Recovered/Resolved]
  - Meningioma [Recovering/Resolving]
  - Speech disorder [Unknown]
  - Anxiety [Not Recovered/Not Resolved]
  - Migraine [Recovering/Resolving]
  - Seizure [Recovered/Resolved]
  - Fear of injection [Unknown]
  - Psoriasis [Recovering/Resolving]
  - Headache [Not Recovered/Not Resolved]
  - Mania [Recovered/Resolved]
  - Visual impairment [Recovering/Resolving]
  - Pain [Recovering/Resolving]
  - Mania [Recovering/Resolving]
  - Cognitive disorder [Not Recovered/Not Resolved]
  - Seizure [Not Recovered/Not Resolved]
  - Memory impairment [Not Recovered/Not Resolved]
  - Migraine [Recovered/Resolved]
  - Impaired work ability [Not Recovered/Not Resolved]
  - Psoriasis [Recovered/Resolved]
  - Migraine [Recovered/Resolved]
  - Meningioma [Recovered/Resolved]
  - Brain neoplasm [Not Recovered/Not Resolved]
  - Balance disorder [Unknown]
  - Neoplasm progression [Recovering/Resolving]
  - Neoplasm progression [Recovering/Resolving]

NARRATIVE: CASE EVENT DATE: 20210415
